FAERS Safety Report 8877123 (Version 1)
Quarter: 2012Q4

REPORT INFORMATION
  Report Type: 
  Country: US (occurrence: US)
  Receive Date: 20121023
  Receipt Date: 20121023
  Transmission Date: 20130627
  Serious: No
  Sender: FDA-Public Use
  Company Number: US-AMGEN-USASP2012056976

PATIENT
  Age: 23 Year
  Sex: Male

DRUGS (4)
  1. ENBREL [Suspect]
     Indication: PRODUCT USED FOR UNKNOWN INDICATION
     Dosage: 50 mg, 2 times/wk
     Route: 058
  2. CLARITIN                           /00413701/ [Concomitant]
     Dosage: 10 mg, UNK
  3. IBUPROFEN [Concomitant]
     Dosage: 200 mg, UNK
  4. BENADRYL                           /00000402/ [Concomitant]
     Dosage: 25 mg, UNK

REACTIONS (1)
  - Therapeutic response decreased [Unknown]
